FAERS Safety Report 20815913 (Version 2)
Quarter: 2022Q2

REPORT INFORMATION
  Report Type: Spontaneous
  Country: US (occurrence: US)
  Receive Date: 20220511
  Receipt Date: 20220602
  Transmission Date: 20220721
  Serious: Yes (Other)
  Sender: FDA-Public Use
  Company Number: US-Emergent Biosolutions-22000084

PATIENT
  Sex: Female

DRUGS (1)
  1. NALOXONE HYDROCHLORIDE [Suspect]
     Active Substance: NALOXONE HYDROCHLORIDE
     Indication: Overdose
     Dosage: 3 TIMES
     Route: 065
     Dates: start: 20220429, end: 20220429

REACTIONS (5)
  - Drug ineffective [Unknown]
  - Lethargy [Not Recovered/Not Resolved]
  - Euphoric mood [Not Recovered/Not Resolved]
  - Head titubation [Not Recovered/Not Resolved]
  - Malaise [Not Recovered/Not Resolved]

NARRATIVE: CASE EVENT DATE: 20220429
